FAERS Safety Report 6921990-9 (Version None)
Quarter: 2010Q3

REPORT INFORMATION
  Report Type: 
  Country: None (occurrence: None)
  Receive Date: 20100806
  Receipt Date: 20090702
  Transmission Date: 20110219
  Serious: No
  Sender: FDA-Public Use
  Company Number: 2009-00278

PATIENT
  Age: 76 Year
  Sex: Male
  Weight: 83.9154 kg

DRUGS (2)
  1. ZICAM COLD REMEDY GEL SWABS [Suspect]
     Dosage: 3 DOSES, 3 DOSES
     Dates: start: 20081201, end: 20081201
  2. ZICAM COLD REMEDY GEL SWABS [Suspect]
     Dosage: 3 DOSES, 3 DOSES
     Dates: start: 20081201, end: 20081201

REACTIONS (2)
  - AGEUSIA [None]
  - ANOSMIA [None]
